FAERS Safety Report 5754125-9 (Version None)
Quarter: 2008Q2

REPORT INFORMATION
  Report Type: 
  Country: None (occurrence: None)
  Receive Date: 20080530
  Receipt Date: 20080515
  Transmission Date: 20081010
  Serious: Yes (Life-Threatening, Other)
  Sender: FDA-Public Use
  Company Number: EE-ROCHE-563532

PATIENT
  Age: 36 Year
  Sex: Male
  Weight: 80 kg

DRUGS (4)
  1. CELLCEPT [Suspect]
     Route: 048
     Dates: start: 19960101
  2. CITALOPRAM HYDROBROMIDE [Suspect]
     Indication: DEPRESSION
     Route: 048
     Dates: start: 20080301, end: 20080505
  3. IRBESARTAN [Concomitant]
     Route: 048
     Dates: start: 20080301
  4. NORVASC [Concomitant]
     Route: 048
     Dates: start: 20070101

REACTIONS (4)
  - LUNG INJURY [None]
  - PNEUMONIA [None]
  - PSYCHOTIC DISORDER [None]
  - SELF INJURIOUS BEHAVIOUR [None]
